FAERS Safety Report 14349351 (Version 4)
Quarter: 2018Q1

REPORT INFORMATION
  Report Type: Report from Study
  Country: KR (occurrence: KR)
  Receive Date: 20180104
  Receipt Date: 20180314
  Transmission Date: 20180509
  Serious: Yes (Hospitalization)
  Sender: FDA-Public Use
  Company Number: KR-ROCHE-1895429

PATIENT
  Age: 34 Year
  Sex: Female

DRUGS (56)
  1. TRASTUZUMAB. [Suspect]
     Active Substance: TRASTUZUMAB
     Route: 042
     Dates: start: 20170308
  2. TRASTUZUMAB. [Suspect]
     Active Substance: TRASTUZUMAB
     Route: 042
     Dates: start: 20170515
  3. ALOXI [Concomitant]
     Active Substance: PALONOSETRON HYDROCHLORIDE
     Indication: PREMEDICATION
     Dosage: FORM STRENGTH: 0.25MG/5ML
     Route: 042
     Dates: start: 20170125
  4. SMECTA [Concomitant]
     Active Substance: MONTMORILLONITE
     Indication: PROPHYLAXIS
     Dosage: 20 ML/PACK
     Route: 048
     Dates: start: 20170201, end: 20170206
  5. ZYPREXA ZYDIS [Concomitant]
     Active Substance: OLANZAPINE
     Indication: PROPHYLAXIS
     Route: 048
     Dates: start: 20170201, end: 20170206
  6. PERTUZUMAB. [Suspect]
     Active Substance: PERTUZUMAB
     Route: 042
     Dates: start: 20170308
  7. TRASTUZUMAB. [Suspect]
     Active Substance: TRASTUZUMAB
     Indication: BREAST CANCER
     Route: 042
     Dates: start: 20170125
  8. TRASTUZUMAB. [Suspect]
     Active Substance: TRASTUZUMAB
     Route: 042
     Dates: start: 20170329
  9. OMPS [Concomitant]
     Route: 048
     Dates: start: 20170214, end: 20170220
  10. ULCERLMIN [Concomitant]
     Active Substance: SUCRALFATE
     Dosage: 15 ML/PACK
     Route: 048
     Dates: start: 20170201, end: 20170206
  11. MAXIPIM [Concomitant]
     Indication: PROPHYLAXIS
     Route: 042
     Dates: start: 20170224, end: 20170227
  12. MOTILITONE [Concomitant]
     Active Substance: HERBALS
     Indication: PROPHYLAXIS
     Route: 048
     Dates: start: 20170329, end: 20170407
  13. PERTUZUMAB. [Suspect]
     Active Substance: PERTUZUMAB
     Route: 042
     Dates: start: 20170214
  14. DEXAMETHASONE. [Concomitant]
     Active Substance: DEXAMETHASONE
     Indication: PREMEDICATION
     Route: 042
     Dates: start: 20170125
  15. SMECTA [Concomitant]
     Active Substance: MONTMORILLONITE
     Route: 048
     Dates: start: 20170308, end: 20170314
  16. OMPS [Concomitant]
     Route: 048
     Dates: start: 20170419, end: 20170419
  17. ZYPREXA ZYDIS [Concomitant]
     Active Substance: OLANZAPINE
     Route: 048
     Dates: start: 20170308, end: 20170314
  18. ULCERLMIN [Concomitant]
     Active Substance: SUCRALFATE
     Route: 048
     Dates: start: 20170214, end: 20170220
  19. SODIUM BICARBONATE. [Concomitant]
     Active Substance: SODIUM BICARBONATE
     Route: 065
     Dates: start: 20170224, end: 20170228
  20. TRASTUZUMAB. [Suspect]
     Active Substance: TRASTUZUMAB
     Route: 042
     Dates: start: 20170214
  21. MACPERAN [Concomitant]
     Active Substance: METOCLOPRAMIDE HYDROCHLORIDE
     Route: 048
     Dates: start: 20170329, end: 20170402
  22. DEXAMETHASONE. [Concomitant]
     Active Substance: DEXAMETHASONE
     Route: 042
     Dates: start: 20170126
  23. DEXAMETHASONE. [Concomitant]
     Active Substance: DEXAMETHASONE
     Dosage: 10 MG +16 MG
     Route: 042
     Dates: start: 20170308, end: 20170308
  24. TYLENOL [Concomitant]
     Active Substance: ACETAMINOPHEN
     Route: 048
     Dates: start: 20170419, end: 20170419
  25. CURAN [Concomitant]
     Active Substance: RANITIDINE HYDROCHLORIDE
     Route: 048
     Dates: start: 20170126, end: 20170130
  26. SMECTA [Concomitant]
     Active Substance: MONTMORILLONITE
     Route: 048
     Dates: start: 20170214, end: 20170220
  27. FUCIDIN [Concomitant]
     Active Substance: FUSIDIC ACID
     Route: 065
     Dates: start: 20170225, end: 20170228
  28. MOTILITONE [Concomitant]
     Active Substance: HERBALS
     Route: 048
     Dates: start: 20170419, end: 20170428
  29. PERTUZUMAB. [Suspect]
     Active Substance: PERTUZUMAB
     Route: 042
     Dates: start: 20170515
  30. DOCETAXEL. [Suspect]
     Active Substance: DOCETAXEL
     Indication: BREAST CANCER
     Route: 065
     Dates: start: 20170125
  31. MACPERAN [Concomitant]
     Active Substance: METOCLOPRAMIDE HYDROCHLORIDE
     Route: 048
     Dates: start: 20170126, end: 20170130
  32. MACPERAN [Concomitant]
     Active Substance: METOCLOPRAMIDE HYDROCHLORIDE
     Route: 048
     Dates: start: 20170308, end: 20170312
  33. TYLENOL [Concomitant]
     Active Substance: ACETAMINOPHEN
     Dosage: 1T
     Route: 048
     Dates: start: 20170308, end: 20170312
  34. TYLENOL [Concomitant]
     Active Substance: ACETAMINOPHEN
     Route: 048
     Dates: start: 20170329, end: 20170402
  35. OMPS [Concomitant]
     Indication: PROPHYLAXIS
     Route: 048
     Dates: start: 20170201, end: 20170206
  36. ULCERLMIN [Concomitant]
     Active Substance: SUCRALFATE
     Dosage: 15 ML/PACK
     Route: 048
     Dates: start: 20170308, end: 20170314
  37. ULCERLMIN [Concomitant]
     Active Substance: SUCRALFATE
     Dosage: 15 ML/PACK
     Route: 048
     Dates: start: 20170329, end: 20170402
  38. PERTUZUMAB. [Suspect]
     Active Substance: PERTUZUMAB
     Indication: BREAST CANCER
     Dosage: LOADING DOSE
     Route: 042
     Dates: start: 20170125
  39. PERTUZUMAB. [Suspect]
     Active Substance: PERTUZUMAB
     Route: 042
     Dates: start: 20170419
  40. DEXAMETHASONE. [Concomitant]
     Active Substance: DEXAMETHASONE
     Route: 042
     Dates: start: 20170419, end: 20170419
  41. ALOXI [Concomitant]
     Active Substance: PALONOSETRON HYDROCHLORIDE
     Route: 042
     Dates: start: 20170419, end: 20170419
  42. OMPS [Concomitant]
     Route: 048
     Dates: start: 20170329, end: 20170407
  43. PERTUZUMAB. [Suspect]
     Active Substance: PERTUZUMAB
     Route: 042
     Dates: start: 20170329
  44. MACPERAN [Concomitant]
     Active Substance: METOCLOPRAMIDE HYDROCHLORIDE
     Indication: PREMEDICATION
     Route: 042
     Dates: start: 20170125
  45. DEXAMETHASONE. [Concomitant]
     Active Substance: DEXAMETHASONE
     Route: 042
     Dates: start: 20170213
  46. TYLENOL [Concomitant]
     Active Substance: ACETAMINOPHEN
     Indication: PREMEDICATION
     Route: 048
     Dates: start: 20170125
  47. TYLENOL [Concomitant]
     Active Substance: ACETAMINOPHEN
     Route: 048
     Dates: start: 20170126
  48. AUGMENTIN [Concomitant]
     Active Substance: AMOXICILLIN\CLAVULANATE POTASSIUM
     Indication: OROPHARYNGEAL PAIN
     Route: 048
     Dates: start: 20170308, end: 20170314
  49. ACTIFED (SOUTH KOREA) [Concomitant]
     Indication: RHINORRHOEA
     Route: 048
     Dates: start: 20170308, end: 20170314
  50. RINOEBASTEL [Concomitant]
     Indication: RHINORRHOEA
     Route: 048
     Dates: start: 20170224, end: 20170227
  51. TRASTUZUMAB. [Suspect]
     Active Substance: TRASTUZUMAB
     Route: 042
     Dates: start: 20170419
  52. DOCETAXEL. [Suspect]
     Active Substance: DOCETAXEL
     Route: 065
     Dates: start: 20170214
  53. MACPERAN [Concomitant]
     Active Substance: METOCLOPRAMIDE HYDROCHLORIDE
     Route: 048
     Dates: start: 20170419, end: 20170419
  54. ALOXI [Concomitant]
     Active Substance: PALONOSETRON HYDROCHLORIDE
     Route: 042
     Dates: start: 20170308, end: 20170308
  55. OMPS [Concomitant]
     Route: 048
     Dates: start: 20170308, end: 20170314
  56. ZOYLEX [Concomitant]
     Indication: PROPHYLAXIS
     Route: 048
     Dates: start: 20170308, end: 20170314

REACTIONS (5)
  - Vaginal infection [Recovered/Resolved]
  - Anaemia [Recovered/Resolved]
  - Febrile neutropenia [Recovered/Resolved]
  - Skin abrasion [Recovered/Resolved]
  - Oropharyngeal pain [Recovered/Resolved]

NARRATIVE: CASE EVENT DATE: 20170215
